FAERS Safety Report 9374750 (Version 1)
Quarter: 2013Q2

REPORT INFORMATION
  Report Type: Report from Study
  Country: US (occurrence: US)
  Receive Date: 20130628
  Receipt Date: 20130628
  Transmission Date: 20140414
  Serious: Yes (Other)
  Sender: FDA-Public Use
  Company Number: US-PFIZER INC-2013190201

PATIENT
  Age: 64 Year
  Sex: Male

DRUGS (1)
  1. ALDACTONE [Suspect]

REACTIONS (1)
  - Hypotension [Unknown]
